FAERS Safety Report 23552505 (Version 5)
Quarter: 2024Q3

REPORT INFORMATION
  Report Type: Report from Study
  Country: KR (occurrence: KR)
  Receive Date: 20240222
  Receipt Date: 20240723
  Transmission Date: 20241016
  Serious: Yes (Other)
  Sender: NOVARTIS
  Company Number: KR-002147023-NVSC2023KR230051

PATIENT
  Age: 51 Year
  Sex: Male
  Weight: 87.3 kg

DRUGS (10)
  1. LUTATHERA [Suspect]
     Active Substance: LUTETIUM OXODOTREOTIDE LU-177
     Indication: Gastroenteropancreatic neuroendocrine tumour disease
     Dosage: 7.4 GBQ
     Route: 042
     Dates: start: 20230706, end: 20230706
  2. LUTATHERA [Suspect]
     Active Substance: LUTETIUM OXODOTREOTIDE LU-177
     Dosage: 7.4 GBQ
     Route: 042
     Dates: start: 20230921, end: 20230921
  3. ARGININE\LYSINE [Suspect]
     Active Substance: ARGININE\LYSINE
     Indication: Renal disorder prophylaxis
     Dosage: 1000 ML
     Route: 042
     Dates: start: 20230706, end: 20230706
  4. ARGININE\LYSINE [Suspect]
     Active Substance: ARGININE\LYSINE
     Dosage: 1000 ML
     Route: 042
     Dates: start: 20230921, end: 20230921
  5. TRAMAROL [Concomitant]
     Indication: Cancer pain
     Dosage: 1 DOSAGE FORM, BID (ER)
     Route: 048
     Dates: start: 20221116
  6. TRAMAROL [Concomitant]
     Dosage: 1 DOSAGE FORM, BID (ER)
     Route: 048
     Dates: start: 20221213, end: 20230926
  7. OXYCODONE HYDROCHLORIDE [Concomitant]
     Active Substance: OXYCODONE HYDROCHLORIDE
     Indication: Cancer pain
     Dosage: 1 DOSAGE FORM, PRN
     Route: 048
     Dates: start: 20230516
  8. OXYCODONE HYDROCHLORIDE [Concomitant]
     Active Substance: OXYCODONE HYDROCHLORIDE
     Dosage: 1 DOSAGE FORM, QID
     Route: 048
     Dates: start: 20230706, end: 20230720
  9. ONDANSETRON [Concomitant]
     Active Substance: ONDANSETRON
     Indication: Nausea
     Dosage: 8 MG, QD
     Route: 042
     Dates: start: 20230706, end: 20230706
  10. ONDANSETRON [Concomitant]
     Active Substance: ONDANSETRON
     Dosage: 8 MG, QD
     Route: 042
     Dates: start: 20230921, end: 20230921

REACTIONS (7)
  - Thrombocytopenia [Not Recovered/Not Resolved]
  - Pancytopenia [Recovering/Resolving]
  - Hypoalbuminaemia [Recovered/Resolved]
  - Epistaxis [Recovered/Resolved]
  - Contusion [Recovering/Resolving]
  - Back pain [Recovering/Resolving]
  - Pelvic pain [Recovering/Resolving]

NARRATIVE: CASE EVENT DATE: 20230808
